FAERS Safety Report 19725486 (Version 1)
Quarter: 2021Q3

REPORT INFORMATION
  Report Type: Spontaneous
  Country: US (occurrence: US)
  Receive Date: 20210819
  Receipt Date: 20210819
  Transmission Date: 20211014
  Serious: No
  Sender: FDA-Public Use
  Company Number: None

PATIENT
  Age: 70 Year
  Sex: Male
  Weight: 87.6 kg

DRUGS (1)
  1. TROPICAMIDE OPHTHALMIC SOLUTION, USP [Suspect]
     Active Substance: TROPICAMIDE
     Indication: CATARACT
     Dates: start: 20210818, end: 20210818

REACTIONS (3)
  - Product delivery mechanism issue [None]
  - Wrong technique in product usage process [None]
  - Instillation site complication [None]

NARRATIVE: CASE EVENT DATE: 20210818
